FAERS Safety Report 8574017 (Version 2)
Quarter: 2016Q1

REPORT INFORMATION
  Report Type: Spontaneous
  Country: US (occurrence: US)
  Receive Date: 20120522
  Receipt Date: 20160322
  Transmission Date: 20160526
  Serious: Yes (Other)
  Sender: FDA-Public Use
  Company Number: US-GLAXOSMITHKLINE-A0977873A

PATIENT
  Age: 79 Year
  Sex: Male

DRUGS (11)
  1. FOLIC ACID. [Concomitant]
     Active Substance: FOLIC ACID
  2. AVODART [Suspect]
     Active Substance: DUTASTERIDE
     Dosage: 0.5 MG, UNK
     Dates: start: 201005
  3. AVODART [Suspect]
     Active Substance: DUTASTERIDE
     Indication: BENIGN PROSTATIC HYPERPLASIA
     Route: 048
  4. COREG CR [Concomitant]
     Active Substance: CARVEDILOL PHOSPHATE
  5. IRON [Concomitant]
     Active Substance: IRON
  6. FRUSEMIDE [Concomitant]
     Active Substance: FUROSEMIDE
  7. PRAVASTATIN [Concomitant]
     Active Substance: PRAVASTATIN\PRAVASTATIN SODIUM
  8. AVODART [Suspect]
     Active Substance: DUTASTERIDE
     Dosage: 0.5 MG, UNK
     Dates: start: 201005
  9. WARFARIN [Concomitant]
     Active Substance: WARFARIN
  10. DEXILANT [Concomitant]
     Active Substance: DEXLANSOPRAZOLE
  11. ASPIRIN (BABY) [Concomitant]
     Active Substance: ASPIRIN

REACTIONS (5)
  - Breast pain [Unknown]
  - Dysphagia [Unknown]
  - Throat irritation [Unknown]
  - Throat tightness [Unknown]
  - Squamous cell carcinoma of the tongue [Not Recovered/Not Resolved]

NARRATIVE: CASE EVENT DATE: 201109
